FAERS Safety Report 4765651-3 (Version None)
Quarter: 2005Q3

REPORT INFORMATION
  Report Type: 
  Country: None (occurrence: None)
  Receive Date: 20050907
  Receipt Date: 20050823
  Transmission Date: 20060218
  Serious: Yes (Hospitalization, Other)
  Sender: FDA-Public Use
  Company Number: 2005-00821

PATIENT
  Age: 69 Year
  Sex: Male
  Weight: 70 kg

DRUGS (4)
  1. VELCADE [Suspect]
     Indication: MULTIPLE MYELOMA
     Dosage: 2.30 MG, 2/WEEK, INTRAVENOUS
     Route: 042
     Dates: start: 20050221, end: 20050322
  2. GABAPENTIN [Concomitant]
  3. CLODRONIC ACID (CLODRONIC ACID) [Concomitant]
  4. VELCADE [Concomitant]

REACTIONS (8)
  - CATARACT [None]
  - DIABETES MELLITUS INSULIN-DEPENDENT [None]
  - LETHARGY [None]
  - LOWER RESPIRATORY TRACT INFECTION [None]
  - NEUROPATHY PERIPHERAL [None]
  - PAIN IN EXTREMITY [None]
  - URINE KETONE BODY PRESENT [None]
  - VISUAL DISTURBANCE [None]
